FAERS Safety Report 16930180 (Version 4)
Quarter: 2019Q4

REPORT INFORMATION
  Report Type: Report from Study
  Country: ES (occurrence: ES)
  Receive Date: 20191017
  Receipt Date: 20191113
  Transmission Date: 20200122
  Serious: Yes (Hospitalization)
  Sender: FDA-Public Use
  Company Number: ES-PFIZER INC-2019433182

PATIENT
  Age: 73 Year
  Sex: Female
  Weight: 69 kg

DRUGS (2)
  1. SANDOSTATIN LAR DEPOT [Suspect]
     Active Substance: OCTREOTIDE ACETATE
     Indication: NEUROENDOCRINE CARCINOMA
     Dosage: 30 MG, CYCLIC 28 DAYS
     Route: 030
     Dates: start: 20190325, end: 20190916
  2. AXITINIB [Suspect]
     Active Substance: AXITINIB
     Indication: NEUROENDOCRINE CARCINOMA
     Dosage: 3 MG, 2X/DAY
     Route: 048
     Dates: start: 20190326, end: 20191003

REACTIONS (1)
  - Cholecystitis [Recovered/Resolved]

NARRATIVE: CASE EVENT DATE: 20191003
